FAERS Safety Report 7816284-3 (Version None)
Quarter: 2011Q4

REPORT INFORMATION
  Report Type: 
  Country: None (occurrence: None)
  Receive Date: 20111016
  Receipt Date: 20111003
  Transmission Date: 20120403
  Serious: Yes (Other)
  Sender: FDA-Public Use
  Company Number: GB-MYLANLABS-2011S1020654

PATIENT
  Age: 4 Year
  Sex: Male

DRUGS (8)
  1. GAVISCON [Suspect]
     Indication: PRODUCT USED FOR UNKNOWN INDICATION
  2. GELOFUSIN [Suspect]
     Indication: PRODUCT USED FOR UNKNOWN INDICATION
  3. PHOSPHATE-SANDOZ [Suspect]
     Indication: PRODUCT USED FOR UNKNOWN INDICATION
  4. VALPROATE SODIUM [Suspect]
     Indication: PRODUCT USED FOR UNKNOWN INDICATION
  5. PEDIASURE [Suspect]
     Indication: PRODUCT USED FOR UNKNOWN INDICATION
  6. DIORALYTE /06820901/ [Suspect]
     Indication: FLUID REPLACEMENT
     Route: 048
  7. SODIUM CHLORIDE INJ [Suspect]
     Indication: PRODUCT USED FOR UNKNOWN INDICATION
  8. ANTIBIOTICS [Concomitant]
     Indication: LOWER RESPIRATORY TRACT INFECTION

REACTIONS (3)
  - DIARRHOEA [None]
  - FANCONI SYNDROME [None]
  - HYPERNATRAEMIA [None]
